FAERS Safety Report 8003119-1 (Version None)
Quarter: 2011Q4

REPORT INFORMATION
  Report Type: 
  Country: None (occurrence: None)
  Receive Date: 20111222
  Receipt Date: 20111213
  Transmission Date: 20120403
  Serious: Yes (Hospitalization, Other)
  Sender: FDA-Public Use
  Company Number: PHHY2011US07049

PATIENT
  Sex: Male

DRUGS (4)
  1. LEVOTHYROXINE SODIUM [Concomitant]
  2. RAMIPRIL [Concomitant]
  3. AMLODIPINE [Concomitant]
  4. TASIGNA [Suspect]
     Indication: CHRONIC MYELOID LEUKAEMIA
     Dosage: 300 MG, BID
     Route: 048
     Dates: start: 20110125

REACTIONS (12)
  - OESOPHAGITIS [None]
  - WEIGHT DECREASED [None]
  - PAIN IN EXTREMITY [None]
  - CARDIAC FAILURE CONGESTIVE [None]
  - FLUID RETENTION [None]
  - TENDONITIS [None]
  - ATRIAL FIBRILLATION [None]
  - ABASIA [None]
  - GASTRITIS [None]
  - CHEST PAIN [None]
  - ALOPECIA [None]
  - PYREXIA [None]
